FAERS Safety Report 10011071 (Version 1)
Quarter: 2014Q1

REPORT INFORMATION
  Report Type: Spontaneous
  Country: FR (occurrence: None)
  Receive Date: 20140312
  Receipt Date: 20140312
  Transmission Date: 20141002
  Serious: Yes (Hospitalization)
  Sender: FDA-Public Use
  Company Number: KAD201402-000242

PATIENT
  Age: 52 Year
  Sex: Male
  Weight: 94 kg

DRUGS (6)
  1. RIBAVIRIN [Suspect]
     Route: 048
     Dates: start: 20131030, end: 20131030
  2. AVLOCARDYL 160 (PROPRANOLOL) [Concomitant]
  3. LANTUS (INSULIN GLARGINE) [Concomitant]
  4. DAIVONEX (CALCIPOTRIOL) [Concomitant]
  5. METFORMINE (METFORMIN HYDROCHLORIDE) [Concomitant]
  6. SOF/LDV/PLACEBO(SOFOSBUVIR,LEDISPAVIR [Suspect]
     Dosage: 1 DOSAGE FORM,
     Route: 048
     Dates: start: 20131030

REACTIONS (2)
  - Abdominal pain upper [None]
  - Constipation [None]
